FAERS Safety Report 25642247 (Version 1)
Quarter: 2025Q3

REPORT INFORMATION
  Report Type: Spontaneous
  Country: US (occurrence: US)
  Receive Date: 20250805
  Receipt Date: 20250805
  Transmission Date: 20251020
  Serious: Yes (Hospitalization, Other)
  Sender: RANBAXY
  Company Number: US-SUN PHARMACEUTICAL INDUSTRIES LTD-2024R1-487981

PATIENT
  Age: 28 Year
  Sex: Male

DRUGS (2)
  1. AMPHETAMINE [Suspect]
     Active Substance: AMPHETAMINE
     Indication: Attention deficit hyperactivity disorder
     Route: 065
  2. ANDROSTANOLONE [Suspect]
     Active Substance: ANDROSTANOLONE
     Indication: Attention deficit hyperactivity disorder
     Route: 065

REACTIONS (1)
  - Hepatitis [Recovering/Resolving]
